FAERS Safety Report 10240190 (Version 3)
Quarter: 2015Q2

REPORT INFORMATION
  Report Type: Spontaneous
  Country: JP (occurrence: JP)
  Receive Date: 20140617
  Receipt Date: 20150626
  Transmission Date: 20150821
  Serious: Yes (Other)
  Sender: FDA-Public Use
  Company Number: JP-UCBSA-2014001185

PATIENT
  Age: 3 Year
  Sex: Female

DRUGS (6)
  1. MUCODYNE [Concomitant]
     Active Substance: CARBOCYSTEINE
     Indication: RHINITIS ALLERGIC
     Dosage: UNK
     Route: 048
     Dates: start: 20140507, end: 20140521
  2. XYZAL [Suspect]
     Active Substance: LEVOCETIRIZINE DIHYDROCHLORIDE
     Indication: RHINITIS ALLERGIC
     Dosage: 2.5 ML, 2X/DAY (BID), DOSAGE FORM: SYRUP
     Route: 048
     Dates: start: 20140519, end: 20140529
  3. NIPOLAZIN [Concomitant]
     Indication: RHINITIS ALLERGIC
     Dosage: 0.05 G, 2X/DAY (BID)
     Route: 048
     Dates: start: 20140519, end: 20140529
  4. HOKUNALIN [Concomitant]
     Active Substance: TULOBUTEROL
     Indication: ASTHMA
     Dosage: 1 MG, ONCE DAILY (QD)
     Route: 062
     Dates: start: 20140519, end: 20140529
  5. TELGIN-G [Concomitant]
     Indication: RHINITIS ALLERGIC
     Route: 048
     Dates: start: 20140507, end: 20140521
  6. IPD [Concomitant]
     Active Substance: SUPLATAST TOSILATE
     Indication: ASTHMA
     Dosage: 0.65 G, 2X/DAY (BID)
     Route: 048
     Dates: start: 20140519, end: 20140529

REACTIONS (4)
  - Constipation [Unknown]
  - Somnolence [Unknown]
  - Depressed level of consciousness [Recovered/Resolved]
  - Asthenia [Unknown]

NARRATIVE: CASE EVENT DATE: 20140531
